FAERS Safety Report 8934084 (Version 1)
Quarter: 2012Q4

REPORT INFORMATION
  Report Type: 
  Country: NL (occurrence: NL)
  Receive Date: 20121129
  Receipt Date: 20121129
  Transmission Date: 20130627
  Serious: Yes (Hospitalization)
  Sender: FDA-Public Use
  Company Number: NL-ELI_LILLY_AND_COMPANY-NL201211005722

PATIENT
  Age: 35 Year
  Sex: Female
  Weight: 85 kg

DRUGS (11)
  1. FORSTEO [Suspect]
     Indication: OSTEOPOROSIS
     Dosage: 20mcg,daily
     Dates: start: 20121108
  2. AMITRIPTYLINE [Concomitant]
     Dosage: 25mg, Unk
  3. CALCIUM CARBONATE W/COLECALCIFEROL [Concomitant]
     Dosage: 1.25/400ie , Unk
     Dates: start: 2007
  4. COTRIMOXAZOL [Concomitant]
     Indication: CHRONIC OBSTRUCTIVE PULMONARY DISEASE
     Dosage: 160/180mg, twice daily
  5. ESOMEPRAZOLE [Concomitant]
     Dosage: 20mg, Unk
  6. LEVOTHYROXINE [Concomitant]
     Dosage: 100ug, UNK
  7. NORTRIPTYLINE [Concomitant]
     Dosage: 25mg, Unk
  8. PREDNISOLON [Concomitant]
     Indication: CHRONIC OBSTRUCTIVE PULMONARY DISEASE
     Dosage: 30mg, daily
     Dates: start: 2007
  9. SALBUTAMOL [Concomitant]
     Dosage: 200ug/unk
     Route: 055
  10. SALMETEROL [Concomitant]
     Dosage: 50ug/unk
     Route: 055
  11. SOTALOL [Concomitant]
     Dosage: 80mg, Unk

REACTIONS (7)
  - Erysipelas [Not Recovered/Not Resolved]
  - Dizziness [Not Recovered/Not Resolved]
  - Headache [Not Recovered/Not Resolved]
  - Nausea [Not Recovered/Not Resolved]
  - Decreased appetite [Not Recovered/Not Resolved]
  - Fatigue [Not Recovered/Not Resolved]
  - Rash [Not Recovered/Not Resolved]
